FAERS Safety Report 6764824-8 (Version None)
Quarter: 2010Q2

REPORT INFORMATION
  Report Type: 
  Country: None (occurrence: None)
  Receive Date: 20100610
  Receipt Date: 20100607
  Transmission Date: 20101027
  Serious: Yes (Death, Hospitalization, Other)
  Sender: FDA-Public Use
  Company Number: US-B.I. PHARMACEUTICALS,INC./RIDGEFIELD-2010-BP-06454BP

PATIENT
  Sex: Female
  Weight: 78.7 kg

DRUGS (35)
  1. MIRAPEX [Suspect]
     Indication: RESTLESS LEGS SYNDROME
     Route: 048
  2. MIRAPEX [Suspect]
     Route: 048
  3. MIRAPEX [Suspect]
     Route: 048
  4. LIPITOR [Suspect]
     Indication: LIPIDS ABNORMAL
  5. CELEBREX [Suspect]
     Indication: ARTHRITIS
     Dosage: 200 MG
     Dates: start: 20090101, end: 20100118
  6. CELEBREX [Suspect]
     Indication: INTERVERTEBRAL DISC DEGENERATION
     Route: 048
     Dates: start: 20090724, end: 20100118
  7. NORVASC [Suspect]
     Indication: HYPERTENSION
     Dosage: 10 MG
     Route: 048
  8. VERAPAMIL HCL [Suspect]
     Indication: HYPERTENSION
     Route: 048
  9. VERAPAMIL HCL [Suspect]
     Route: 048
  10. TRAZODONE HYDROCHLORIDE [Suspect]
     Indication: INSOMNIA
     Route: 048
  11. FUROSEMIDE [Suspect]
     Indication: OEDEMA PERIPHERAL
     Route: 048
  12. FUROSEMIDE [Suspect]
     Route: 042
  13. FUROSEMIDE [Suspect]
     Route: 042
  14. HYDROCODONE HYDROCHLORIDE [Suspect]
     Indication: BACK PAIN
  15. PROZAC [Suspect]
     Indication: DEPRESSION
     Route: 048
     Dates: start: 20090101
  16. PROZAC [Suspect]
     Route: 048
  17. PROZAC [Suspect]
     Route: 048
  18. CORTICOSTEROIDS [Suspect]
     Indication: BACK DISORDER
     Dates: start: 20090101
  19. VITAMIN D [Suspect]
     Indication: SUPPLEMENTATION THERAPY
     Dosage: 2000 MG
     Route: 048
  20. ACETYLSALICYLIC ACID [Suspect]
     Indication: HYPERTENSION
  21. ACETYLSALICYLIC ACID [Suspect]
     Indication: CORONARY ARTERY DISEASE
     Route: 048
  22. ALISKIREN [Concomitant]
  23. ZITHROMAX [Concomitant]
  24. FLEXERIL [Concomitant]
  25. LOVENOX [Concomitant]
     Indication: THROMBOSIS PROPHYLAXIS
  26. LOVENOX [Concomitant]
  27. PEPCID [Concomitant]
  28. ADVAIR DISKUS 100/50 [Concomitant]
  29. LASIX [Concomitant]
     Route: 042
  30. NOVOLOG [Concomitant]
  31. XOPENEX [Concomitant]
  32. NICODERM [Concomitant]
  33. PREDNISONE [Concomitant]
  34. PREDNISONE [Concomitant]
  35. SPIRIVA [Concomitant]

REACTIONS (10)
  - AORTIC STENOSIS [None]
  - CARDIAC ARREST [None]
  - CARDIAC FAILURE [None]
  - CHRONIC OBSTRUCTIVE PULMONARY DISEASE [None]
  - DEPRESSION [None]
  - HYPERTENSION [None]
  - INTERVERTEBRAL DISC DEGENERATION [None]
  - LIPIDS ABNORMAL [None]
  - OSTEOARTHRITIS [None]
  - RESTLESS LEGS SYNDROME [None]
